FAERS Safety Report 5443945-6 (Version None)
Quarter: 2007Q3

REPORT INFORMATION
  Report Type: 
  Country: None (occurrence: None)
  Receive Date: 20070905
  Receipt Date: 20070824
  Transmission Date: 20080115
  Serious: Yes (Other)
  Sender: FDA-Public Use
  Company Number: NO-PFIZER INC-2007071541

PATIENT
  Age: 41 Year
  Sex: Female

DRUGS (5)
  1. LYRICA [Suspect]
     Dosage: DAILY DOSE:300MG
     Route: 048
  2. LAMICTAL [Suspect]
     Route: 048
  3. CIPRALEX [Suspect]
  4. SEROQUEL [Suspect]
  5. STESOLID [Suspect]

REACTIONS (1)
  - ABORTION SPONTANEOUS [None]
